FAERS Safety Report 8473163-9 (Version None)
Quarter: 2012Q2

REPORT INFORMATION
  Report Type: 
  Country: None (occurrence: None)
  Receive Date: 20120627
  Receipt Date: 20120621
  Transmission Date: 20120825
  Serious: Yes (Hospitalization)
  Sender: FDA-Public Use
  Company Number: DE-PFIZER INC-2012123091

PATIENT
  Sex: Female
  Weight: 57 kg

DRUGS (3)
  1. NALOXONE HCL [Suspect]
     Indication: PAIN
     Dosage: 50 MG, UNK
     Dates: start: 20120115
  2. NALOXONE HCL [Suspect]
     Dosage: 150 MG DAILY (50MG IN THE MORNING, 100MG IN THE EVENING)
  3. LYRICA [Suspect]
     Indication: PAIN
     Dosage: 25 MG, DAILY
     Route: 048
     Dates: start: 20120501, end: 20120501

REACTIONS (2)
  - MYOCARDITIS [None]
  - SUPRAVENTRICULAR TACHYCARDIA [None]
